FAERS Safety Report 17004085 (Version 1)
Quarter: 2019Q4

REPORT INFORMATION
  Report Type: Spontaneous
  Country: ES (occurrence: ES)
  Receive Date: 20191107
  Receipt Date: 20191107
  Transmission Date: 20200122
  Serious: Yes (Other)
  Sender: FDA-Public Use
  Company Number: ES-009507513-1910ESP016093

PATIENT
  Age: 36 Year
  Sex: Female
  Weight: 57 kg

DRUGS (2)
  1. INTRON A [Suspect]
     Active Substance: INTERFERON ALFA-2B
     Indication: NODULAR MELANOMA
     Dosage: UNK
     Route: 065
  2. VEMURAFENIB. [Suspect]
     Active Substance: VEMURAFENIB
     Indication: NODULAR MELANOMA
     Dosage: 960 MILLIGRAM, Q12H
     Route: 065

REACTIONS (5)
  - Rash [Recovered/Resolved]
  - Metastasis [Unknown]
  - Metastases to lung [Unknown]
  - Nodular melanoma [Unknown]
  - Hepatotoxicity [Unknown]

NARRATIVE: CASE EVENT DATE: 2012
